FAERS Safety Report 9472261 (Version 1)
Quarter: 2013Q3

REPORT INFORMATION
  Report Type: Spontaneous
  Country: US (occurrence: US)
  Receive Date: 20130823
  Receipt Date: 20130823
  Transmission Date: 20140515
  Serious: Yes (Other)
  Sender: FDA-Public Use
  Company Number: US-ASTRAZENECA-2013SE63893

PATIENT
  Age: 70 Year
  Sex: Male
  Weight: 81.6 kg

DRUGS (2)
  1. TOPROL XL [Suspect]
     Indication: CARDIAC FAILURE
     Route: 048
     Dates: start: 20070615
  2. LIPITOR [Concomitant]
     Indication: ARTERIAL OCCLUSIVE DISEASE

REACTIONS (3)
  - Heart rate irregular [Not Recovered/Not Resolved]
  - Feeling abnormal [Not Recovered/Not Resolved]
  - Sleep disorder due to a general medical condition [Not Recovered/Not Resolved]
